FAERS Safety Report 12930070 (Version 2)
Quarter: 2016Q4

REPORT INFORMATION
  Report Type: Spontaneous
  Country: FR (occurrence: FR)
  Receive Date: 20161110
  Receipt Date: 20161118
  Transmission Date: 20170207
  Serious: Yes (Hospitalization, Other)
  Sender: FDA-Public Use
  Company Number: FR-009507513-1611FRA001423

PATIENT
  Age: 89 Year
  Sex: Female

DRUGS (4)
  1. INVANZ [Suspect]
     Active Substance: ERTAPENEM SODIUM
     Indication: DECUBITUS ULCER
     Dosage: 1 G, QD
     Route: 042
     Dates: start: 20160927, end: 20161002
  2. FUCIDINE (FUSIDATE SODIUM) [Suspect]
     Active Substance: FUSIDATE SODIUM
     Indication: DECUBITUS ULCER
     Dosage: 2 250 MG TABLETS TWICE DAILY
     Route: 048
     Dates: start: 20160926, end: 20161002
  3. INSTANYL [Concomitant]
     Active Substance: FENTANYL
     Dosage: 50 MICRIGRAMS/DAY
     Route: 045
     Dates: start: 20160822
  4. TRANSIPEG [Concomitant]
     Active Substance: POLYETHYLENE GLYCOL 3350
     Dosage: 1 DF, QD
     Route: 048

REACTIONS (1)
  - Epilepsy [Recovered/Resolved]

NARRATIVE: CASE EVENT DATE: 20161001
